FAERS Safety Report 9883253 (Version 1)
Quarter: 2014Q1

REPORT INFORMATION
  Report Type: Spontaneous
  Country: BR (occurrence: BR)
  Receive Date: 20140209
  Receipt Date: 20140209
  Transmission Date: 20141002
  Serious: Yes (Other)
  Sender: FDA-Public Use
  Company Number: BR-BRISTOL-MYERS SQUIBB COMPANY-20152005

PATIENT
  Age: 65 Year
  Sex: Male

DRUGS (2)
  1. GLIFAGE XR [Suspect]
     Indication: DIABETES MELLITUS
     Dosage: 26JAN14-SUSPENDED
     Dates: start: 20140126
  2. LORAX [Concomitant]

REACTIONS (1)
  - Hypertension [Recovered/Resolved]
